FAERS Safety Report 7171179-6 (Version None)
Quarter: 2010Q4

REPORT INFORMATION
  Report Type: 
  Country: None (occurrence: None)
  Receive Date: 20101123
  Receipt Date: 20100820
  Transmission Date: 20110411
  Serious: No
  Sender: FDA-Public Use
  Company Number: 017653

PATIENT
  Sex: Female
  Weight: 82 kg

DRUGS (6)
  1. CIMZIA [Suspect]
     Indication: CROHN'S DISEASE
     Dosage: 400 MG  1X/MONTH SUBCUTANEOUS
     Route: 058
     Dates: start: 20090916, end: 20100401
  2. OMEPRAZOLE [Concomitant]
  3. AMBIEN [Concomitant]
  4. AZATHIOPRINE [Concomitant]
  5. CELEXA [Concomitant]
  6. LEVOTHYROXINE [Concomitant]

REACTIONS (1)
  - ARTHRALGIA [None]
